FAERS Safety Report 10343862 (Version 1)
Quarter: 2014Q3

REPORT INFORMATION
  Report Type: Spontaneous
  Country: JP (occurrence: JP)
  Receive Date: 20140726
  Receipt Date: 20140726
  Transmission Date: 20150326
  Serious: No
  Sender: FDA-Public Use
  Company Number: PHHY2009JP072005

PATIENT
  Age: 48 Year
  Sex: Female

DRUGS (5)
  1. GLIVEC [Suspect]
     Active Substance: IMATINIB MESYLATE
     Dosage: 300 MG, UNK
     Dates: start: 20110901
  2. TASIGNA [Suspect]
     Active Substance: NILOTINIB
     Dosage: 600 MG, UNK
     Dates: start: 20120620
  3. DASATINIB [Suspect]
     Active Substance: DASATINIB
     Dates: start: 20110801
  4. GLIVEC [Suspect]
     Active Substance: IMATINIB MESYLATE
     Indication: CHRONIC MYELOID LEUKAEMIA
     Dosage: 300 MG, UNK
     Dates: start: 20090901
  5. TASIGNA [Suspect]
     Active Substance: NILOTINIB
     Dosage: 400 MG, UNK

REACTIONS (2)
  - Rash [Unknown]
  - Rheumatic disorder [Unknown]
